FAERS Safety Report 9217547 (Version 1)
Quarter: 2013Q2

REPORT INFORMATION
  Report Type: Spontaneous
  Country: US (occurrence: US)
  Receive Date: 20130408
  Receipt Date: 20130408
  Transmission Date: 20140414
  Serious: Yes (Death)
  Sender: FDA-Public Use
  Company Number: US-ASTRAZENECA-2013SE21876

PATIENT
  Age: 168 Day
  Sex: Female

DRUGS (3)
  1. SYNAGIS [Suspect]
     Indication: HERPES SIMPLEX
     Route: 030
     Dates: start: 20130108, end: 20130221
  2. ACYCLOVIR [Concomitant]
  3. VITAMIN B [Concomitant]

REACTIONS (1)
  - Death [Fatal]
